FAERS Safety Report 6924185-8 (Version None)
Quarter: 2010Q3

REPORT INFORMATION
  Report Type: 
  Country: None (occurrence: None)
  Receive Date: 20100812
  Receipt Date: 20100812
  Transmission Date: 20110219
  Serious: Yes (Other)
  Sender: FDA-Public Use
  Company Number: None

PATIENT
  Age: 6 Year
  Sex: Male
  Weight: 28.123 kg

DRUGS (2)
  1. SINGULAIR [Suspect]
     Indication: BRONCHIAL HYPERREACTIVITY
     Dosage: 5MG ONE DAILY PO
     Route: 048
     Dates: start: 20090701, end: 20100810
  2. SINGULAIR [Suspect]
     Indication: MULTIPLE ALLERGIES
     Dosage: 5MG ONE DAILY PO
     Route: 048
     Dates: start: 20090701, end: 20100810

REACTIONS (3)
  - AFFECTIVE DISORDER [None]
  - AGGRESSION [None]
  - ANGER [None]
